FAERS Safety Report 4526573-6 (Version None)
Quarter: 2004Q4

REPORT INFORMATION
  Report Type: 
  Country: None (occurrence: None)
  Receive Date: 20041213
  Receipt Date: 20041129
  Transmission Date: 20050328
  Serious: Yes (Other)
  Sender: FDA-Public Use
  Company Number: 2004-BP-12415AU

PATIENT
  Age: 57 Year
  Sex: Male

DRUGS (9)
  1. PERSANTIN [Suspect]
  2. ATROPINE [Suspect]
     Dosage: 600 MCG
     Route: 042
  3. DOBUTAMINE (DOBUTAMINE) (NR) [Suspect]
     Dosage: IV
     Route: 042
  4. CIPRAMIL (CITALOPRAM HYDROBROMIDE) (TA) [Concomitant]
  5. COVERSYL (PERINDOPRIL) (TA) [Concomitant]
  6. SPIRIVA [Concomitant]
  7. LASIX (FRUSEMIDE) (TA) [Concomitant]
  8. ASPRO (ACETYLSALICYLIC ACID) [Concomitant]
  9. SYMBICORT (BUDESONIDE/EFORMOTEROL) [Concomitant]

REACTIONS (4)
  - DYSPNOEA [None]
  - HEADACHE [None]
  - NAUSEA [None]
  - PARAESTHESIA [None]
